FAERS Safety Report 16839279 (Version 1)
Quarter: 2019Q3

REPORT INFORMATION
  Report Type: Report from Study
  Country: AT (occurrence: AT)
  Receive Date: 20190923
  Receipt Date: 20190923
  Transmission Date: 20191005
  Serious: Yes (Other)
  Sender: FDA-Public Use
  Company Number: AT-PFIZER INC-2019398703

PATIENT

DRUGS (4)
  1. LORAZEPAM. [Suspect]
     Active Substance: LORAZEPAM
     Dosage: UNK
  2. CHLORPROTHIXENE [Suspect]
     Active Substance: CHLORPROTHIXENE
     Dosage: UNK
  3. CIPROFLOXACIN. [Suspect]
     Active Substance: CIPROFLOXACIN
     Indication: ANTIBIOTIC THERAPY
     Dosage: UNK
  4. OXAZEPAM. [Suspect]
     Active Substance: OXAZEPAM
     Dosage: UNK

REACTIONS (1)
  - Ventricular fibrillation [Unknown]
